FAERS Safety Report 5105967-4 (Version None)
Quarter: 2006Q3

REPORT INFORMATION
  Report Type: 
  Country: None (occurrence: None)
  Receive Date: 20060912
  Receipt Date: 20060830
  Transmission Date: 20061208
  Serious: Yes (Hospitalization, Other)
  Sender: FDA-Public Use
  Company Number: 2005133112

PATIENT
  Age: 58 Year
  Sex: Female
  Weight: 58.9676 kg

DRUGS (3)
  1. CELEBREX [Suspect]
     Indication: PAIN
     Dosage: 1 IN 1 D, ORAL
     Route: 048
  2. BEXTRA [Suspect]
     Indication: PAIN
     Dosage: ORAL
     Route: 048
  3. VIOXX [Suspect]
     Indication: ILL-DEFINED DISORDER
     Dosage: ORAL
     Route: 048

REACTIONS (7)
  - CARDIAC DISORDER [None]
  - DYSPNOEA [None]
  - HAEMORRHAGE [None]
  - INJURY [None]
  - RESPIRATORY DISORDER [None]
  - THROMBOSIS [None]
  - VASCULAR INJURY [None]
